FAERS Safety Report 9221027 (Version 1)
Quarter: 2013Q2

REPORT INFORMATION
  Report Type: Report from Study
  Country: FR (occurrence: FR)
  Receive Date: 20130409
  Receipt Date: 20130409
  Transmission Date: 20140414
  Serious: Yes (Other)
  Sender: FDA-Public Use
  Company Number: FR-BAXTER-2013BAX012757

PATIENT
  Age: 17 Year
  Sex: Female

DRUGS (10)
  1. HOLOXAN [Suspect]
     Indication: NEOPLASM MALIGNANT
     Route: 042
     Dates: start: 20120119
  2. HOLOXAN [Suspect]
     Route: 042
     Dates: start: 20130320
  3. BEVACIZUMAB [Suspect]
     Indication: NEOPLASM MALIGNANT
     Route: 042
     Dates: start: 20120119
  4. BEVACIZUMAB [Suspect]
     Route: 042
     Dates: start: 20130320
  5. DACTINOMYCIN [Suspect]
     Indication: NEOPLASM MALIGNANT
     Route: 042
     Dates: start: 20120119
  6. DACTINOMYCIN [Suspect]
     Route: 042
     Dates: start: 20130227
  7. DOXORUBICIN [Suspect]
     Indication: NEOPLASM MALIGNANT
     Route: 042
     Dates: start: 20120119
  8. DOXORUBICIN [Suspect]
     Route: 042
     Dates: start: 20130320
  9. VINCRISTINE [Suspect]
     Indication: NEOPLASM MALIGNANT
     Route: 042
     Dates: start: 20120119
  10. VINCRISTINE [Suspect]
     Route: 042
     Dates: start: 20130320

REACTIONS (1)
  - Paronychia [Unknown]
